FAERS Safety Report 8438388-7 (Version None)
Quarter: 2012Q2

REPORT INFORMATION
  Report Type: 
  Country: None (occurrence: None)
  Receive Date: 20120614
  Receipt Date: 20120608
  Transmission Date: 20120825
  Serious: Yes (Hospitalization, Other)
  Sender: FDA-Public Use
  Company Number: US-MERCK-1203USA03506

PATIENT
  Age: 58 Year
  Sex: Female

DRUGS (6)
  1. FOSAMAX [Suspect]
     Route: 048
     Dates: start: 20080101, end: 20100401
  2. FOSAMAX [Suspect]
     Indication: OSTEOPOROSIS
     Route: 048
     Dates: start: 20010101, end: 20080201
  3. CORTICOSTEROIDS (UNSPECIFIED) [Concomitant]
     Route: 065
     Dates: start: 19970101
  4. OMEPRAZOLE [Concomitant]
     Route: 065
     Dates: start: 20000101, end: 20080101
  5. VITAMINS (UNSPECIFIED) [Concomitant]
     Route: 065
     Dates: start: 19950101, end: 20100101
  6. OS-CAL (CALCIUM CARBONATE) [Concomitant]
     Indication: OSTEOPOROSIS
     Route: 065
     Dates: start: 19920101, end: 20060101

REACTIONS (6)
  - FRACTURE NONUNION [None]
  - FEMUR FRACTURE [None]
  - HYPERTENSION [None]
  - LOW TURNOVER OSTEOPATHY [None]
  - ADVERSE EVENT [None]
  - PAIN [None]
